FAERS Safety Report 4316761-6 (Version None)
Quarter: 2004Q1

REPORT INFORMATION
  Report Type: 
  Country: None (occurrence: None)
  Receive Date: 20040311
  Receipt Date: 20040226
  Transmission Date: 20041129
  Serious: Yes (Death, Hospitalization)
  Sender: FDA-Public Use
  Company Number: HQWYE428327FEB04

PATIENT
  Age: 79 Year
  Sex: Male

DRUGS (2)
  1. VANCOLED [Suspect]
     Indication: BACTERAEMIA
     Dosage: 1 GRAM, INTRAVENOUS; SEE IMAGE
     Route: 042
     Dates: start: 19971231, end: 19971231
  2. VANCOLED [Suspect]
     Indication: BACTERAEMIA
     Dosage: 1 GRAM, INTRAVENOUS; SEE IMAGE
     Route: 042
     Dates: start: 19980101, end: 19980213

REACTIONS (6)
  - BLOOD CULTURE POSITIVE [None]
  - DYSPNOEA [None]
  - MENTAL STATUS CHANGES [None]
  - PATHOGEN RESISTANCE [None]
  - PYREXIA [None]
  - STAPHYLOCOCCAL INFECTION [None]
